FAERS Safety Report 5409401-6 (Version None)
Quarter: 2007Q3

REPORT INFORMATION
  Report Type: 
  Country: None (occurrence: None)
  Receive Date: 20070808
  Receipt Date: 20070808
  Transmission Date: 20080115
  Serious: No
  Sender: FDA-Public Use
  Company Number: None

PATIENT
  Age: 42 Year
  Sex: Male
  Weight: 74.8 kg

DRUGS (1)
  1. CLOZAPINE [Suspect]
     Indication: SCHIZOPHRENIA
     Dosage: 600MG EVERY NIGHT AT BED PO
     Route: 048
     Dates: start: 20070726, end: 20070802

REACTIONS (8)
  - CONDITION AGGRAVATED [None]
  - HALLUCINATION [None]
  - NAUSEA [None]
  - PARANOIA [None]
  - PHARMACEUTICAL PRODUCT COMPLAINT [None]
  - SCHIZOPHRENIA [None]
  - TREMOR [None]
  - VOMITING [None]
